FAERS Safety Report 13612746 (Version 1)
Quarter: 2017Q2

REPORT INFORMATION
  Report Type: Spontaneous
  Country: US (occurrence: US)
  Receive Date: 20170605
  Receipt Date: 20170605
  Transmission Date: 20170830
  Serious: No
  Sender: FDA-Public Use
  Company Number: US-ALLERGAN-1709574US

PATIENT
  Sex: Female
  Weight: 58.96 kg

DRUGS (2)
  1. KYBELLA [Suspect]
     Active Substance: DEOXYCHOLIC ACID
     Indication: FAT TISSUE INCREASED
     Dosage: UNK UNK, SINGLE
     Route: 058
     Dates: start: 201610, end: 201610
  2. VITAMINS [Concomitant]
     Active Substance: VITAMINS
     Indication: SUPPLEMENTATION THERAPY
     Dosage: UNK
     Route: 048

REACTIONS (3)
  - Injection site nodule [Not Recovered/Not Resolved]
  - Injection site swelling [Recovered/Resolved]
  - Injection site hypoaesthesia [Recovered/Resolved]
